FAERS Safety Report 16752750 (Version 2)
Quarter: 2019Q3

REPORT INFORMATION
  Report Type: Report from Study
  Country: None (occurrence: US)
  Receive Date: 20190828
  Receipt Date: 20190830
  Transmission Date: 20191005
  Serious: Yes (Other)
  Sender: FDA-Public Use
  Company Number: US-ABBVIE-19K-163-2867870-00

PATIENT
  Age: 43 Year
  Sex: Female

DRUGS (2)
  1. HUMIRA [Suspect]
     Active Substance: ADALIMUMAB
     Indication: PSORIATIC ARTHROPATHY
     Route: 058
  2. HUMIRA [Suspect]
     Active Substance: ADALIMUMAB
     Route: 058

REACTIONS (11)
  - Formication [Unknown]
  - Drug ineffective [Unknown]
  - Intracranial pressure increased [Unknown]
  - Psoriatic arthropathy [Unknown]
  - Back pain [Unknown]
  - Cestode infection [Unknown]
  - Adverse event [Unknown]
  - Mobility decreased [Unknown]
  - Memory impairment [Unknown]
  - Ankylosing spondylitis [Unknown]
  - Weight decreased [Unknown]

NARRATIVE: CASE EVENT DATE: 201902
